FAERS Safety Report 17225557 (Version 1)
Quarter: 2020Q1

REPORT INFORMATION
  Report Type: Report from Study
  Country: US (occurrence: US)
  Receive Date: 20200102
  Receipt Date: 20200102
  Transmission Date: 20200409
  Serious: Yes (Other)
  Sender: FDA-Public Use
  Company Number: US-MYLANLABS-2019M1013101

PATIENT
  Sex: Female
  Weight: 91 kg

DRUGS (1)
  1. GLATIRAMER ACETATE INJECTION [Suspect]
     Active Substance: GLATIRAMER ACETATE
     Indication: RELAPSING-REMITTING MULTIPLE SCLEROSIS
     Dosage: 40 MILLIGRAM, 3XW
     Route: 058
     Dates: start: 20181226

REACTIONS (5)
  - Injection site pain [Recovering/Resolving]
  - Injection site pruritus [Not Recovered/Not Resolved]
  - Product substitution issue [Unknown]
  - Injection site mass [Not Recovered/Not Resolved]
  - Multiple sclerosis [Unknown]
